FAERS Safety Report 6601287-7 (Version None)
Quarter: 2010Q1

REPORT INFORMATION
  Report Type: 
  Country: None (occurrence: None)
  Receive Date: 20100217
  Receipt Date: 20100208
  Transmission Date: 20100710
  Serious: Yes (Death, Hospitalization)
  Sender: FDA-Public Use
  Company Number: B0633565A

PATIENT
  Age: 87 Year
  Sex: Male
  Weight: 38.9186 kg

DRUGS (2)
  1. DIGOXIN [Suspect]
     Indication: CARDIAC FAILURE CONGESTIVE
  2. FRUSEMIDE [Concomitant]

REACTIONS (25)
  - ALTERED STATE OF CONSCIOUSNESS [None]
  - ANAEMIA [None]
  - BLOOD POTASSIUM DECREASED [None]
  - BLOOD SODIUM INCREASED [None]
  - BRADYCARDIA [None]
  - BRONCHITIS [None]
  - CEREBRAL ATROPHY [None]
  - CONFUSIONAL STATE [None]
  - CONVULSION [None]
  - CORONARY ARTERY STENOSIS [None]
  - DEHYDRATION [None]
  - DEMYELINATION [None]
  - ELECTROCARDIOGRAM ABNORMAL [None]
  - HYDROCEPHALUS [None]
  - HYPOPROTEINAEMIA [None]
  - HYPOTENSION [None]
  - INCREASED VISCOSITY OF BRONCHIAL SECRETION [None]
  - LYMPHOCYTIC INFILTRATION [None]
  - NEPHROSCLEROSIS [None]
  - OSMOTIC DEMYELINATION SYNDROME [None]
  - PYREXIA [None]
  - RENAL FAILURE [None]
  - THERAPEUTIC AGENT TOXICITY [None]
  - URINARY BLADDER HAEMORRHAGE [None]
  - VOMITING [None]
